FAERS Safety Report 24293854 (Version 1)
Quarter: 2024Q3

REPORT INFORMATION
  Report Type: Spontaneous
  Country: US (occurrence: None)
  Receive Date: 20240906
  Receipt Date: 20240906
  Transmission Date: 20241017
  Serious: No
  Sender: DOMPE FARMACEUTICI
  Company Number: US-FARMAPROD-202308-202403-0733

PATIENT
  Age: 61 Year
  Sex: Female
  Weight: 90.22 kg

DRUGS (18)
  1. OXERVATE [Suspect]
     Active Substance: CENEGERMIN-BKBJ
     Indication: Neurotrophic keratopathy
     Route: 047
     Dates: start: 20240227, end: 20240303
  2. TEMOVATE [Concomitant]
     Active Substance: CLOBETASOL PROPIONATE
  3. CALCIUM\CHOLECALCIFEROL [Concomitant]
     Active Substance: CALCIUM\CHOLECALCIFEROL
     Dosage: 600MG-12.5
  4. UNSPECIFIED INGREDIENT [Concomitant]
     Active Substance: UNSPECIFIED INGREDIENT
     Dosage: 0.05 %-1 %
  5. REFRESH OPTIVE MEGA-3 [Concomitant]
     Active Substance: CARBOXYMETHYLCELLULOSE SODIUM\GLYCERIN\POLYSORBATE 80
  6. OMEPRAZOLE [Concomitant]
     Active Substance: OMEPRAZOLE
  7. BRIMONIDINE TARTRATE [Concomitant]
     Active Substance: BRIMONIDINE TARTRATE
  8. ROSUVASTATIN CALCIUM [Concomitant]
     Active Substance: ROSUVASTATIN CALCIUM
  9. DORZOLAMIDE\TIMOLOL [Concomitant]
     Active Substance: DORZOLAMIDE\TIMOLOL
     Dosage: 22.3-6.8/1
  10. DORZOLAMIDE\TIMOLOL [Concomitant]
     Active Substance: DORZOLAMIDE\TIMOLOL
     Dosage: 2 %-0.5 %
  11. SYSTANE (HYPROMELLOSE 2910 (4000 MPA.S)) [Concomitant]
     Active Substance: HYPROMELLOSE 2910 (4000 MPA.S)
     Dosage: 0.3 %-0.4%
  12. VITAMINS [Concomitant]
     Active Substance: VITAMINS
  13. KETOCONAZOLE [Concomitant]
     Active Substance: KETOCONAZOLE
  14. NEOMYCIN-POLYMYXIN-DEXAMETH [Concomitant]
  15. TOLTERODINE TARTRATE [Concomitant]
     Active Substance: TOLTERODINE TARTRATE
     Dosage: EXTENDED RELEASE FOR 24 HOURS
  16. TRIAMCINOLONE ACETONIDE [Concomitant]
     Active Substance: TRIAMCINOLONE ACETONIDE
  17. TRIAMCINOLONE ACETONIDE [Concomitant]
     Active Substance: TRIAMCINOLONE ACETONIDE
  18. TACROLIMUS [Concomitant]
     Active Substance: TACROLIMUS

REACTIONS (5)
  - Eye pain [Recovering/Resolving]
  - Eye swelling [Recovering/Resolving]
  - Ocular hyperaemia [Recovering/Resolving]
  - Eye irritation [Recovering/Resolving]
  - Drug hypersensitivity [Recovering/Resolving]

NARRATIVE: CASE EVENT DATE: 20240201
